FAERS Safety Report 8993846 (Version 1)
Quarter: 2013Q1

REPORT INFORMATION
  Report Type: Spontaneous
  Country: US (occurrence: US)
  Receive Date: 20130102
  Receipt Date: 20130102
  Transmission Date: 20140127
  Serious: No
  Sender: FDA-Public Use
  Company Number: US-AMGEN-USASP2012083093

PATIENT
  Age: 51 Year
  Sex: Female
  Weight: 81.18 kg

DRUGS (5)
  1. ENBREL [Suspect]
     Indication: JUVENILE IDIOPATHIC ARTHRITIS
     Dosage: 50 MG, QWK
     Route: 058
     Dates: start: 20121014
  2. PREDNISONE [Concomitant]
     Dosage: UNK
  3. METHOTREXATE [Concomitant]
     Dosage: UNK
  4. HYZAAR [Concomitant]
     Dosage: UNK
  5. SALSALATE [Concomitant]
     Dosage: UNK

REACTIONS (5)
  - Dry skin [Not Recovered/Not Resolved]
  - Rash [Recovering/Resolving]
  - Injection site reaction [Not Recovered/Not Resolved]
  - Injection site pruritus [Not Recovered/Not Resolved]
  - Injection site erythema [Not Recovered/Not Resolved]
